FAERS Safety Report 5499762-4 (Version None)
Quarter: 2007Q4

REPORT INFORMATION
  Report Type: 
  Country: None (occurrence: None)
  Receive Date: 20071026
  Receipt Date: 20071018
  Transmission Date: 20080405
  Serious: Yes (Other)
  Sender: FDA-Public Use
  Company Number: US-PFIZER INC-2007059865

PATIENT
  Sex: Female
  Weight: 78 kg

DRUGS (2)
  1. LIPITOR [Suspect]
     Indication: BLOOD CHOLESTEROL
     Dates: start: 20040101, end: 20070701
  2. SYNTHROID [Concomitant]

REACTIONS (35)
  - ABASIA [None]
  - ACTIVITIES OF DAILY LIVING IMPAIRED [None]
  - ADVERSE DRUG REACTION [None]
  - ANOREXIA [None]
  - ARTHRALGIA [None]
  - BACK PAIN [None]
  - BLOOD CHOLESTEROL INCREASED [None]
  - BURSITIS [None]
  - CERVICOBRACHIAL SYNDROME [None]
  - CONSTIPATION [None]
  - DECREASED ACTIVITY [None]
  - FATIGUE [None]
  - GAIT DISTURBANCE [None]
  - GALLBLADDER OPERATION [None]
  - GASTROINTESTINAL DISORDER [None]
  - HYPERHIDROSIS [None]
  - HYPOAESTHESIA [None]
  - HYPOTHYROIDISM [None]
  - INTERVERTEBRAL DISC PROTRUSION [None]
  - JOINT RANGE OF MOTION DECREASED [None]
  - LOW DENSITY LIPOPROTEIN INCREASED [None]
  - LUMBAR RADICULOPATHY [None]
  - MUSCLE SPASMS [None]
  - MUSCULOSKELETAL PAIN [None]
  - MYALGIA [None]
  - NAUSEA [None]
  - NECK PAIN [None]
  - PAIN [None]
  - PAIN IN EXTREMITY [None]
  - PERIPHERAL SENSORY NEUROPATHY [None]
  - ROTATOR CUFF SYNDROME [None]
  - SENSORY LOSS [None]
  - SPONDYLOLISTHESIS [None]
  - VOMITING [None]
  - WEIGHT DECREASED [None]
